FAERS Safety Report 9301980 (Version 1)
Quarter: 2013Q2

REPORT INFORMATION
  Report Type: Spontaneous
  Country: CN (occurrence: CN)
  Receive Date: 20130521
  Receipt Date: 20130521
  Transmission Date: 20140414
  Serious: Yes (Other)
  Sender: FDA-Public Use
  Company Number: CN-PFIZER INC-2013151388

PATIENT
  Sex: 0

DRUGS (1)
  1. TYGACIL [Suspect]

REACTIONS (2)
  - Haemorrhage subcutaneous [Recovered/Resolved]
  - Leukopenia [Recovered/Resolved]
